FAERS Safety Report 16635712 (Version 1)
Quarter: 2019Q3

REPORT INFORMATION
  Report Type: Report from Study
  Country: TH (occurrence: TH)
  Receive Date: 20190726
  Receipt Date: 20190726
  Transmission Date: 20191004
  Serious: Yes (Other)
  Sender: FDA-Public Use
  Company Number: TH-AUROBINDO-AUR-APL-2019-044611

PATIENT

DRUGS (2)
  1. MELPHALAN INJECTION [Suspect]
     Active Substance: MELPHALAN
     Indication: RETINOBLASTOMA
     Dosage: UNK, TOTAL 3 SESSIONS
     Route: 013
  2. CARBOPLATIN. [Suspect]
     Active Substance: CARBOPLATIN
     Indication: RETINOBLASTOMA
     Dosage: 30 MILLIGRAM, TOTAL 4 SESSIONS
     Route: 013

REACTIONS (1)
  - Transient ischaemic attack [Recovered/Resolved]
